FAERS Safety Report 4607820-9 (Version None)
Quarter: 2005Q1

REPORT INFORMATION
  Report Type: 
  Country: None (occurrence: None)
  Receive Date: 20050314
  Receipt Date: 20050304
  Transmission Date: 20050727
  Serious: Yes (Other)
  Sender: FDA-Public Use
  Company Number: US-GLAXOSMITHKLINE-A0548339A

PATIENT
  Age: 58 Year
  Sex: Male
  Weight: 81 kg

DRUGS (3)
  1. NICORETTE (MINT) [Suspect]
     Route: 002
     Dates: start: 20030101
  2. COZAAR [Concomitant]
  3. CHOLESTEROL REDUCING AGENT [Concomitant]

REACTIONS (6)
  - DEPENDENCE [None]
  - DISTURBANCE IN ATTENTION [None]
  - IRRITABILITY [None]
  - NERVOUSNESS [None]
  - NICOTINE DEPENDENCE [None]
  - PSYCHOMOTOR HYPERACTIVITY [None]
